FAERS Safety Report 5374974-9 (Version None)
Quarter: 2007Q2

REPORT INFORMATION
  Report Type: 
  Country: None (occurrence: None)
  Receive Date: 20070627
  Receipt Date: 20070627
  Transmission Date: 20071010
  Serious: Yes (Hospitalization)
  Sender: FDA-Public Use
  Company Number: None

PATIENT
  Age: 80 Year
  Sex: Male

DRUGS (1)
  1. VANCOMYCIN HCL [Suspect]
     Indication: CLOSTRIDIUM DIFFICILE COLITIS
     Dosage: 125MG QID PO
     Route: 048
     Dates: start: 20070330, end: 20070409

REACTIONS (1)
  - ANGIOEDEMA [None]
